FAERS Safety Report 4771302-4 (Version None)
Quarter: 2005Q3

REPORT INFORMATION
  Report Type: 
  Country: None (occurrence: None)
  Receive Date: 20050915
  Receipt Date: 20050901
  Transmission Date: 20060218
  Serious: Yes (Hospitalization)
  Sender: FDA-Public Use
  Company Number: US-2004-037230

PATIENT
  Age: 48 Year
  Sex: Male
  Weight: 75.3 kg

DRUGS (5)
  1. BETASERON [Suspect]
     Dosage: 8 MIU, EVERY 2D, SUBCUTANEOUS
     Route: 058
     Dates: start: 20040727, end: 20041223
  2. DILANTIN /CAN/(PHENYTOIN) [Concomitant]
  3. AMANTADINE HCL [Concomitant]
  4. PHRENLIN (BUTALBITAL) [Concomitant]
  5. ANTIINFLAMMATORY/ANTIRHEUMATIC PRODUCTS [Concomitant]

REACTIONS (8)
  - ANXIETY [None]
  - ARTHRALGIA [None]
  - BRAIN NEOPLASM [None]
  - DEPRESSION [None]
  - EMOTIONAL DISORDER [None]
  - HYPOKALAEMIA [None]
  - MALIGNANT HISTIOCYTOSIS [None]
  - STATUS EPILEPTICUS [None]
